FAERS Safety Report 9513934 (Version 3)
Quarter: 2014Q1

REPORT INFORMATION
  Report Type: Spontaneous
  Country: ES (occurrence: ES)
  Receive Date: 20130910
  Receipt Date: 20140129
  Transmission Date: 20141002
  Serious: Yes (Other)
  Sender: FDA-Public Use
  Company Number: ES-ELI_LILLY_AND_COMPANY-ES201309001330

PATIENT
  Age: 62 Year
  Sex: Female

DRUGS (2)
  1. FORSTEO [Suspect]
     Indication: OSTEOPOROSIS
     Dosage: 20 UG, UNK
     Route: 058
     Dates: start: 20121002
  2. FORSTEO [Suspect]
     Dosage: 20 UG, QD
     Route: 058
     Dates: start: 201303

REACTIONS (5)
  - Hepatitis [Recovered/Resolved]
  - Myalgia [Recovered/Resolved]
  - Disorientation [Recovered/Resolved]
  - Pyrexia [Recovered/Resolved]
  - Stupor [Recovered/Resolved]
